FAERS Safety Report 6272799-3 (Version None)
Quarter: 2009Q3

REPORT INFORMATION
  Report Type: 
  Country: None (occurrence: None)
  Receive Date: 20090717
  Receipt Date: 20090710
  Transmission Date: 20100115
  Serious: Yes (Other)
  Sender: FDA-Public Use
  Company Number: CZ-AMGEN-US340675

PATIENT
  Age: 30 Year
  Sex: Male

DRUGS (2)
  1. ENBREL [Suspect]
     Indication: ANKYLOSING SPONDYLITIS
     Route: 058
     Dates: end: 20080601
  2. ENBREL [Suspect]
     Route: 058
     Dates: start: 20080101, end: 20090101

REACTIONS (2)
  - OPTIC NEURITIS [None]
  - TUBERCULOSIS TEST POSITIVE [None]
